FAERS Safety Report 7949122-9 (Version None)
Quarter: 2011Q4

REPORT INFORMATION
  Report Type: 
  Country: None (occurrence: None)
  Receive Date: 20111130
  Receipt Date: 20111128
  Transmission Date: 20120403
  Serious: Yes (Hospitalization)
  Sender: FDA-Public Use
  Company Number: US-VERTEX PHARMACEUTICALS INC.-AE-2011-001642

PATIENT
  Age: 51 Year
  Sex: Female
  Weight: 56.75 kg

DRUGS (8)
  1. RIBAVIRIN [Concomitant]
     Dates: start: 20110101
  2. RIBAVIRIN [Concomitant]
     Indication: HEPATITIS C
     Dates: start: 20110803
  3. LISINOPRIL [Concomitant]
     Indication: BLOOD PRESSURE
     Route: 048
  4. HYDRCORTISONE CREAM [Concomitant]
     Indication: RASH
     Route: 061
  5. INCIVEK [Suspect]
     Indication: HEPATITIS C
     Route: 048
     Dates: start: 20110803
  6. PEGINTERFERON [Concomitant]
     Indication: HEPATITIS C
     Dates: start: 20110803
  7. ATENOLOL [Concomitant]
     Indication: BLOOD PRESSURE
     Route: 048
  8. PHENERGAN [Concomitant]
     Route: 048

REACTIONS (5)
  - DEHYDRATION [None]
  - HAEMOGLOBIN DECREASED [None]
  - HAEMATOCRIT DECREASED [None]
  - INSOMNIA [None]
  - HAEMORRHOIDS [None]
